FAERS Safety Report 10210393 (Version 1)
Quarter: 2014Q2

REPORT INFORMATION
  Report Type: Spontaneous
  Country: US (occurrence: US)
  Receive Date: 20140602
  Receipt Date: 20140602
  Transmission Date: 20141212
  Serious: Yes (Hospitalization, Other)
  Sender: FDA-Public Use
  Company Number: US-SA-2014SA069430

PATIENT
  Age: 84 Year
  Sex: Female

DRUGS (2)
  1. LANTUS [Suspect]
     Indication: DIABETES MELLITUS
     Dosage: DOSE:25 UNIT(S)
     Route: 065
  2. IBGSTAR METER [Suspect]

REACTIONS (5)
  - Fall [Unknown]
  - Pelvic fracture [Unknown]
  - Deafness [Unknown]
  - Deafness unilateral [None]
  - Medical device complication [None]
